FAERS Safety Report 19397179 (Version 2)
Quarter: 2021Q3

REPORT INFORMATION
  Report Type: Report from Study
  Country: US (occurrence: US)
  Receive Date: 20210609
  Receipt Date: 20210723
  Transmission Date: 20211014
  Serious: Yes (Hospitalization, Other)
  Sender: FDA-Public Use
  Company Number: US-SEATTLE GENETICS-2021SGN03066

PATIENT
  Sex: Female

DRUGS (2)
  1. DECADRON [Suspect]
     Active Substance: DEXAMETHASONE
  2. TUCATINIB [Suspect]
     Active Substance: TUCATINIB
     Indication: PRODUCT USED FOR UNKNOWN INDICATION
     Dosage: 150 MG

REACTIONS (5)
  - Metastases to central nervous system [Unknown]
  - Hospitalisation [Unknown]
  - Gastrooesophageal reflux disease [Unknown]
  - Fatigue [Not Recovered/Not Resolved]
  - Memory impairment [Unknown]
